FAERS Safety Report 10043156 (Version 1)
Quarter: 2014Q1

REPORT INFORMATION
  Report Type: Spontaneous
  Country: CH (occurrence: CH)
  Receive Date: 20140328
  Receipt Date: 20140328
  Transmission Date: 20141002
  Serious: Yes (Other)
  Sender: FDA-Public Use
  Company Number: CH-ROCHE-1372192

PATIENT
  Sex: Male

DRUGS (1)
  1. MABTHERA [Suspect]
     Indication: MANTLE CELL LYMPHOMA
     Route: 042

REACTIONS (4)
  - Neurotoxicity [Unknown]
  - Disease progression [Unknown]
  - Thrombocytopenia [Unknown]
  - Neutropenia [Unknown]
